FAERS Safety Report 14550047 (Version 1)
Quarter: 2018Q1

REPORT INFORMATION
  Report Type: Report from Study
  Country: US (occurrence: US)
  Receive Date: 20180219
  Receipt Date: 20180219
  Transmission Date: 20180509
  Serious: No
  Sender: FDA-Public Use
  Company Number: US-ACADIA PHARMACEUTICALS INC.-ACA-2017-006499

PATIENT
  Sex: Male
  Weight: 72.57 kg

DRUGS (4)
  1. RYTARY [Concomitant]
     Active Substance: CARBIDOPA\LEVODOPA
     Indication: PRODUCT USED FOR UNKNOWN INDICATION
     Dosage: 36.25/145 MG TABLETS- 3 IN THE MORNING, 2 AT 11 AM, 2 AT 3PM,3  AT 7PM AND 3 AT 11PM
     Route: 065
  2. NUPLAZID [Suspect]
     Active Substance: PIMAVANSERIN TARTRATE
     Indication: HALLUCINATION
     Dosage: 34 MG, QD
     Route: 065
     Dates: start: 201607, end: 201707
  3. NUPLAZID [Suspect]
     Active Substance: PIMAVANSERIN TARTRATE
     Indication: DELUSION
     Dosage: 1 TABLET IN THE MORNING, 2 TABLET AT NIGHT
     Route: 065
     Dates: start: 201707
  4. NUPLAZID [Suspect]
     Active Substance: PIMAVANSERIN TARTRATE
     Indication: PARKINSON^S DISEASE PSYCHOSIS

REACTIONS (6)
  - Parkinsonian rest tremor [Unknown]
  - Tardive dyskinesia [Unknown]
  - Prescribed overdose [Unknown]
  - Tic [Unknown]
  - Delusion [Recovered/Resolved]
  - Tongue disorder [Unknown]
